FAERS Safety Report 11514289 (Version 1)
Quarter: 2015Q3

REPORT INFORMATION
  Report Type: Spontaneous
  Country: US (occurrence: US)
  Receive Date: 20150903
  Receipt Date: 20150903
  Transmission Date: 20151125
  Serious: No
  Sender: FDA-Public Use
  Company Number: US-ELI_LILLY_AND_COMPANY-US201210000443

PATIENT
  Sex: Female

DRUGS (4)
  1. CYMBALTA [Suspect]
     Active Substance: DULOXETINE HYDROCHLORIDE
     Indication: MYALGIA
     Dosage: 60 MG, QD
     Dates: end: 20120918
  2. CYMBALTA [Suspect]
     Active Substance: DULOXETINE HYDROCHLORIDE
     Dosage: 60 MG, QD
     Dates: start: 20120926
  3. METHADONE [Concomitant]
     Active Substance: METHADONE HYDROCHLORIDE
     Dosage: 10 MG, UNKNOWN
  4. OXYCODONE [Concomitant]
     Active Substance: OXYCODONE
     Dosage: 30 MG, UNK

REACTIONS (3)
  - Paraesthesia [Recovered/Resolved]
  - Drug dose omission [Unknown]
  - Pain [Recovered/Resolved]
